FAERS Safety Report 4654736-8 (Version None)
Quarter: 2005Q2

REPORT INFORMATION
  Report Type: 
  Country: None (occurrence: None)
  Receive Date: 20050506
  Receipt Date: 20050427
  Transmission Date: 20051028
  Serious: Yes (Other)
  Sender: FDA-Public Use
  Company Number: US-JNJFOC-20041202419

PATIENT
  Sex: Female
  Weight: 54.43 kg

DRUGS (16)
  1. REMICADE [Suspect]
     Route: 042
  2. REMICADE [Suspect]
     Route: 042
  3. REMICADE [Suspect]
     Route: 042
  4. REMICADE [Suspect]
     Indication: RHEUMATOID ARTHRITIS
     Route: 042
  5. PREVACID [Concomitant]
  6. KLONIPIN [Concomitant]
  7. ESTRADIOL [Concomitant]
  8. SALAGEN [Concomitant]
  9. FLEXORIL [Concomitant]
  10. ASPIRIN [Concomitant]
  11. CALCIUM GLUCONATE [Concomitant]
  12. FOLIC ACID [Concomitant]
  13. ELADIL [Concomitant]
     Indication: MIGRAINE
  14. SYSTANE [Concomitant]
  15. IMITREX [Concomitant]
  16. FOCALIN [Concomitant]

REACTIONS (9)
  - BRONCHITIS [None]
  - HYPOAESTHESIA [None]
  - HYSTERECTOMY [None]
  - IRRITABLE BOWEL SYNDROME [None]
  - JOINT SWELLING [None]
  - ONYCHOMYCOSIS [None]
  - PARAESTHESIA [None]
  - SPINAL DISORDER [None]
  - VISION BLURRED [None]
